FAERS Safety Report 18292541 (Version 3)
Quarter: 2020Q4

REPORT INFORMATION
  Report Type: Spontaneous
  Country: AR (occurrence: AR)
  Receive Date: 20200922
  Receipt Date: 20201021
  Transmission Date: 20210113
  Serious: Yes (Death, Hospitalization, Other)
  Sender: FDA-Public Use
  Company Number: AR-AMGEN-ARGSP2020153158

PATIENT
  Age: 62 Year
  Sex: Female

DRUGS (1)
  1. ENBREL [Suspect]
     Active Substance: ETANERCEPT
     Indication: RHEUMATOID ARTHRITIS
     Dosage: 50 MILLIGRAM, QWK
     Route: 065
     Dates: start: 20191101, end: 20200902

REACTIONS (6)
  - Lung disorder [Fatal]
  - Respiratory arrest [Fatal]
  - Respiratory failure [Fatal]
  - Diabetes mellitus [Fatal]
  - Death [Fatal]
  - Renal failure [Fatal]

NARRATIVE: CASE EVENT DATE: 202009
